FAERS Safety Report 8785185 (Version 1)
Quarter: 2012Q4

REPORT INFORMATION
  Report Type: Spontaneous
  Country: MX (occurrence: None)
  Receive Date: 20120831
  Receipt Date: 20120831
  Transmission Date: 20130627
  Serious: Yes (Death, Hospitalization, Other)
  Sender: FDA-Public Use
  Company Number: ENTC2012-0385

PATIENT
  Age: 82 Year
  Sex: Male
  Weight: 50 kg

DRUGS (1)
  1. STALEVO (LEVODOPA, CARBIDOPA, ENTACAPONE) [Suspect]
     Indication: PARKINSON^S DISEASE
     Dosage: 2 tablets (150/37.5/200 mg) daily oral
     Route: 048
     Dates: start: 2007

REACTIONS (4)
  - Pneumonia [None]
  - Neoplasm malignant [None]
  - Weight decreased [None]
  - Fatigue [None]
